FAERS Safety Report 9761198 (Version 13)
Quarter: 2015Q2

REPORT INFORMATION
  Report Type: Spontaneous
  Country: US (occurrence: US)
  Receive Date: 20131216
  Receipt Date: 20150430
  Transmission Date: 20150821
  Serious: Yes (Hospitalization, Other)
  Sender: FDA-Public Use
  Company Number: US-PFIZER INC-2013357785

PATIENT
  Age: 76 Year
  Sex: Female
  Weight: 54 kg

DRUGS (21)
  1. COREG [Concomitant]
     Active Substance: CARVEDILOL
     Indication: ESSENTIAL HYPERTENSION
  2. LEVOTHYROXINE [Concomitant]
     Active Substance: LEVOTHYROXINE
     Indication: HYPOTHYROIDISM
     Dosage: 75 UG, DAILY
     Route: 048
  3. PROTONIX [Suspect]
     Active Substance: PANTOPRAZOLE SODIUM
     Indication: GASTRIC ULCER
     Dosage: 40 MG, 2X/DAY
     Route: 048
  4. ALTACE [Suspect]
     Active Substance: RAMIPRIL
     Indication: ESSENTIAL HYPERTENSION
  5. LASIX [Concomitant]
     Active Substance: FUROSEMIDE
     Indication: ESSENTIAL HYPERTENSION
  6. COREG [Concomitant]
     Active Substance: CARVEDILOL
     Indication: HEART RATE IRREGULAR
     Dosage: 12.5 MG, 2X/DAY
     Route: 048
  7. SIMVASTATIN. [Concomitant]
     Active Substance: SIMVASTATIN
     Indication: HYPERLIPIDAEMIA
     Dosage: 20 MG, DAILY
     Route: 048
     Dates: start: 20130530
  8. POTASSIUM CHLORIDE. [Concomitant]
     Active Substance: POTASSIUM CHLORIDE
     Indication: HYPERTENSION
     Dosage: 20 MEQ/15ML, 1 TABLESPOONFUL IN LIQUID AND DRINK DAILY
     Route: 048
  9. ALTACE [Suspect]
     Active Substance: RAMIPRIL
     Indication: HYPERTENSION
     Dosage: 5 MG, 2X/DAY
     Route: 048
  10. CARAFATE [Concomitant]
     Active Substance: SUCRALFATE
     Dosage: UNK, 1X/DAY
  11. NITRO-DUR [Concomitant]
     Active Substance: NITROGLYCERIN
     Dosage: UNK
  12. ESTRACE [Concomitant]
     Active Substance: ESTRADIOL
     Indication: MENOPAUSAL DISORDER
     Dosage: 2 MG, 1X/DAY
     Route: 048
     Dates: start: 20150202
  13. NEOMYCIN-POLYMYXIN-HC [Concomitant]
     Indication: EAR DISCOMFORT
     Dosage: INSTILL 3 DROPS IN AFFECTED EAR(S) 3-4 TIMES, DAILY
     Dates: start: 20141211
  14. SUCRALFATE. [Concomitant]
     Active Substance: SUCRALFATE
     Dosage: UNK
  15. LYRICA [Suspect]
     Active Substance: PREGABALIN
     Indication: TRIGEMINAL NEURALGIA
     Dosage: 75 MG, 2X/DAY
     Route: 048
     Dates: start: 2002
  16. IMDUR [Concomitant]
     Active Substance: ISOSORBIDE MONONITRATE
     Indication: HYPERTENSION
     Dosage: 30 MG, 1X/DAY
     Route: 048
  17. JANTOVEN [Concomitant]
     Active Substance: WARFARIN SODIUM
     Indication: ANTICOAGULANT THERAPY
     Dosage: 2.5 MG ONE TAB FOR 5 DAYS AND ONE HALF TAB M AND TH
     Route: 048
  18. LASIX [Concomitant]
     Active Substance: FUROSEMIDE
     Indication: CARDIAC FAILURE CONGESTIVE
     Dosage: 1 TABLET, DAILY
     Route: 048
     Dates: start: 20141124
  19. LASIX [Concomitant]
     Active Substance: FUROSEMIDE
     Indication: MITRAL VALVE DISEASE
  20. NEOMYCIN-POLYMYXIN-HC [Concomitant]
     Indication: EAR PAIN
  21. NEOMYCIN-POLYMYXIN-HC [Concomitant]
     Indication: ABSCESS DRAINAGE

REACTIONS (4)
  - Gastric ulcer haemorrhage [Unknown]
  - Coronary artery stenosis [Unknown]
  - Chest pain [Unknown]
  - Palpitations [Unknown]

NARRATIVE: CASE EVENT DATE: 2012
